FAERS Safety Report 8829773 (Version 4)
Quarter: 2013Q2

REPORT INFORMATION
  Report Type: Report from Study
  Country: IT (occurrence: IT)
  Receive Date: 20121008
  Receipt Date: 20130610
  Transmission Date: 20140414
  Serious: Yes (Death, Hospitalization, Other)
  Sender: FDA-Public Use
  Company Number: IT-BRISTOL-MYERS SQUIBB COMPANY-17005554

PATIENT
  Age: 62 Year
  Sex: Female
  Weight: 93 kg

DRUGS (2)
  1. CARBOPLATIN [Suspect]
     Indication: OVARIAN CANCER
     Dosage: PRIOR TO SAE: 18APR12
     Route: 042
     Dates: start: 20120418
  2. PACLITAXEL [Suspect]
     Indication: OVARIAN CANCER
     Dosage: PRIOR TO SAE: 18APR12
     Route: 042
     Dates: start: 20120418

REACTIONS (3)
  - Megacolon [Fatal]
  - Caecitis [Not Recovered/Not Resolved]
  - Pancreatic neuroendocrine tumour [Unknown]
